FAERS Safety Report 9830045 (Version 2)
Quarter: 2014Q1

REPORT INFORMATION
  Report Type: Spontaneous
  Country: US (occurrence: US)
  Receive Date: 20140120
  Receipt Date: 20140306
  Transmission Date: 20141002
  Serious: Yes (Hospitalization)
  Sender: FDA-Public Use
  Company Number: US-VERTEX PHARMACEUTICALS INC-2014-000218

PATIENT
  Age: 53 Year
  Sex: Male
  Weight: 81.63 kg

DRUGS (7)
  1. INCIVEK [Suspect]
     Indication: HEPATITIS C
     Dosage: 2 DF, TID
     Dates: start: 20131208
  2. INCIVEK [Suspect]
     Dosage: 2 DF, BID
     Dates: end: 20140226
  3. COPEGUS [Suspect]
     Indication: HEPATITIS C
     Dosage: 3 DF, BID
     Dates: start: 20131208, end: 20140226
  4. PEGASYS [Suspect]
     Indication: HEPATITIS C
     Dosage: 180 ?G, QW
     Dates: start: 20131208, end: 20140226
  5. PROZAC [Concomitant]
     Indication: ANTIDEPRESSANT THERAPY
     Dosage: 20 G, QD
  6. LISINOPRIL [Concomitant]
     Indication: BLOOD PRESSURE
  7. PLAVIX [Concomitant]
     Indication: PROPHYLAXIS

REACTIONS (12)
  - Myocardial infarction [Unknown]
  - Drug dose omission [Unknown]
  - Incorrect drug administration duration [Unknown]
  - Depression [Recovering/Resolving]
  - Vision blurred [Not Recovered/Not Resolved]
  - Lacrimation increased [Recovered/Resolved]
  - Decreased appetite [Not Recovered/Not Resolved]
  - Lethargy [Recovering/Resolving]
  - Feeling abnormal [Recovering/Resolving]
  - Sleep disorder [Not Recovered/Not Resolved]
  - Eye swelling [Recovered/Resolved]
  - Skin irritation [Not Recovered/Not Resolved]
